FAERS Safety Report 5113872-2 (Version None)
Quarter: 2006Q3

REPORT INFORMATION
  Report Type: 
  Country: None (occurrence: None)
  Receive Date: 20060921
  Receipt Date: 20060907
  Transmission Date: 20061208
  Serious: Yes (Other)
  Sender: FDA-Public Use
  Company Number: 2006S1000085

PATIENT
  Age: 80 Year
  Sex: Female

DRUGS (1)
  1. CUBICIN [Suspect]
     Indication: LOCALISED INFECTION
     Dosage: 4 MG/KG; Q24H

REACTIONS (2)
  - ENCEPHALOPATHY [None]
  - PARALYSIS [None]
